FAERS Safety Report 9971550 (Version 1)
Quarter: 2014Q1

REPORT INFORMATION
  Report Type: Spontaneous
  Country: CA (occurrence: None)
  Receive Date: 20140305
  Receipt Date: 20140305
  Transmission Date: 20141002
  Serious: Yes (Other)
  Sender: FDA-Public Use
  Company Number: None

PATIENT
  Age: 10 Month
  Sex: Male
  Weight: 8.16 kg

DRUGS (1)
  1. ZARBEE^S NATURALS BABY COUGH SYRUP [Suspect]
     Indication: COUGH
     Route: 048
     Dates: start: 20140227, end: 20140302

REACTIONS (3)
  - Product contamination physical [None]
  - Poor quality drug administered [None]
  - Product quality issue [None]
